FAERS Safety Report 25640499 (Version 1)
Quarter: 2025Q3

REPORT INFORMATION
  Report Type: Spontaneous
  Country: US (occurrence: US)
  Receive Date: 20250804
  Receipt Date: 20250804
  Transmission Date: 20251021
  Serious: Yes (Hospitalization)
  Sender: ABBVIE
  Company Number: US-ABBVIE-6398041

PATIENT
  Age: 64 Year
  Sex: Male

DRUGS (3)
  1. CEFTAROLINE [Suspect]
     Active Substance: CEFTAROLINE
     Indication: Product used for unknown indication
     Route: 065
  2. Meropenem Vaborbactam [Concomitant]
     Indication: Product used for unknown indication
     Route: 065
  3. TIGECYCLINE [Concomitant]
     Active Substance: TIGECYCLINE
     Indication: Product used for unknown indication
     Route: 065

REACTIONS (3)
  - Spinal cord abscess [Unknown]
  - Cerebrospinal fluid leakage [Unknown]
  - Infection [Not Recovered/Not Resolved]

NARRATIVE: CASE EVENT DATE: 20250101
